FAERS Safety Report 20766374 (Version 2)
Quarter: 2022Q2

REPORT INFORMATION
  Report Type: Spontaneous
  Country: US (occurrence: US)
  Receive Date: 20220428
  Receipt Date: 20220509
  Transmission Date: 20220721
  Serious: Yes (Other)
  Sender: FDA-Public Use
  Company Number: US-009507513-2204USA006446

PATIENT
  Sex: Female
  Weight: 63.5 kg

DRUGS (3)
  1. PNEUMOVAX 23 [Suspect]
     Active Substance: PNEUMOCOCCAL VACCINE, POLYVALENT 23
     Indication: Prophylaxis
     Dosage: 1 DOSAGE FORM
     Dates: start: 202008
  2. ZOSTAVAX [Suspect]
     Active Substance: VARICELLA-ZOSTER VIRUS STRAIN OKA/MERCK LIVE ANTIGEN
     Indication: Prophylaxis
     Dosage: 1 DOSAGE FORM
     Dates: start: 2018
  3. PRINIVIL [Suspect]
     Active Substance: LISINOPRIL
     Indication: Hypertension
     Dosage: 10 MILLIGRAM, ONCE A DAY IN THE MORNING
     Route: 048
     Dates: start: 2016

REACTIONS (8)
  - Loss of consciousness [Unknown]
  - Blood pressure increased [Unknown]
  - Drug interaction [Unknown]
  - Feeling abnormal [Unknown]
  - Feeling abnormal [Unknown]
  - Malaise [Unknown]
  - Vaccination site swelling [Unknown]
  - Vaccination site pain [Unknown]

NARRATIVE: CASE EVENT DATE: 20200101
